FAERS Safety Report 18580065 (Version 1)
Quarter: 2020Q4

REPORT INFORMATION
  Report Type: Spontaneous
  Country: FR (occurrence: FR)
  Receive Date: 20201204
  Receipt Date: 20201204
  Transmission Date: 20210114
  Serious: Yes (Other)
  Sender: FDA-Public Use
  Company Number: FR-PFIZER INC-2020472301

PATIENT
  Age: 65 Year
  Sex: Male
  Weight: 79 kg

DRUGS (10)
  1. OFLOXACINE [Concomitant]
     Active Substance: OFLOXACIN
     Dosage: UNK
  2. ALLOPURINOL. [Concomitant]
     Active Substance: ALLOPURINOL
     Dosage: UNK
  3. OLANZAPINE. [Concomitant]
     Active Substance: OLANZAPINE
     Dosage: UNK
  4. ACUPAN [Concomitant]
     Active Substance: NEFOPAM HYDROCHLORIDE
     Dosage: UNK
  5. SOLUPRED [Concomitant]
     Dosage: UNK
  6. GEMCITABINE HYDROCHLORIDE. [Suspect]
     Active Substance: GEMCITABINE HYDROCHLORIDE
     Indication: BLADDER CANCER STAGE IV
     Dosage: 2 G
     Route: 041
     Dates: start: 20180802, end: 20181028
  7. ANSATIPINE [Concomitant]
     Active Substance: RIFABUTIN
     Dosage: UNK
  8. RIMIFON [Concomitant]
     Active Substance: ISONIAZID
     Dosage: UNK
  9. CISPLATINE [Suspect]
     Active Substance: CISPLATIN
     Indication: BLADDER CANCER STAGE IV
     Dosage: 100 MG
     Route: 041
     Dates: start: 20180802, end: 20181028
  10. PANTOPRAZOLE [Concomitant]
     Active Substance: PANTOPRAZOLE
     Dosage: UNK

REACTIONS (2)
  - Hypoacusis [Not Recovered/Not Resolved]
  - Neuropathy peripheral [Not Recovered/Not Resolved]

NARRATIVE: CASE EVENT DATE: 201811
